FAERS Safety Report 22047929 (Version 4)
Quarter: 2023Q2

REPORT INFORMATION
  Report Type: Spontaneous
  Country: US (occurrence: US)
  Receive Date: 20230301
  Receipt Date: 20230419
  Transmission Date: 20230721
  Serious: Yes (Other)
  Sender: FDA-Public Use
  Company Number: US-Vifor (International) Inc.-VIT-2023-01238

PATIENT
  Age: 63 Year
  Sex: Female
  Weight: 61.4 kg

DRUGS (8)
  1. MIRCERA [Suspect]
     Active Substance: METHOXY POLYETHYLENE GLYCOL-EPOETIN BETA
     Indication: Product used for unknown indication
  2. MIRCERA [Suspect]
     Active Substance: METHOXY POLYETHYLENE GLYCOL-EPOETIN BETA
     Dosage: LAST DOSE ADMINISTERED BEFORE THE ADVERSE EVENTS 27-DEC-2022
     Route: 042
     Dates: start: 20221227
  3. MIRCERA [Suspect]
     Active Substance: METHOXY POLYETHYLENE GLYCOL-EPOETIN BETA
     Dosage: DOSE NUMBER: 5, DOSE CATEGORY: DOSE 5
     Route: 042
     Dates: start: 20230110, end: 2023
  4. VENOFER [Suspect]
     Active Substance: IRON SUCROSE
     Indication: Product used for unknown indication
     Route: 042
  5. VENOFER [Suspect]
     Active Substance: IRON SUCROSE
     Dosage: EVERY TREATMENT
     Route: 040
     Dates: start: 20230110, end: 20230110
  6. HEPARIN SODIUM [Concomitant]
     Active Substance: HEPARIN SODIUM
     Dosage: DOSE ADMINISTERED: 3000 UNITS?HEPARIN SODIUM (PORCINE) STRENGTH 1000 UNITS/ML SYSTEMIC
     Route: 040
     Dates: start: 20230110
  7. HEPARIN SODIUM [Concomitant]
     Active Substance: HEPARIN SODIUM
     Dosage: DOSE ADMINISTERED: 2200/ARTERIAL RED PORT; 2200/VENOUS BLUE PORT.?HEPARIN SODIUM (PORCINE) STRENGTH:
     Dates: start: 20230110
  8. HECTOROL [Concomitant]
     Active Substance: DOXERCALCIFEROL
     Dosage: 3X WEEK
     Route: 042
     Dates: start: 20230110

REACTIONS (8)
  - Respiratory distress [Unknown]
  - Feeling abnormal [Unknown]
  - Chest pain [Unknown]
  - Malaise [Unknown]
  - Drug hypersensitivity [Recovered/Resolved]
  - Nausea [Recovered/Resolved]
  - Vomiting [Recovered/Resolved]
  - Dyspnoea [Recovered/Resolved]

NARRATIVE: CASE EVENT DATE: 20230110
